FAERS Safety Report 18530766 (Version 7)
Quarter: 2021Q2

REPORT INFORMATION
  Report Type: Report from Study
  Country: CO (occurrence: CO)
  Receive Date: 20201121
  Receipt Date: 20210612
  Transmission Date: 20210717
  Serious: Yes (Life-Threatening)
  Sender: FDA-Public Use
  Company Number: CO-TAKEDA-CO202004421

PATIENT
  Age: 51 Year
  Sex: Female
  Weight: 110 kg

DRUGS (13)
  1. ICATIBANT [Suspect]
     Active Substance: ICATIBANT ACETATE
     Indication: HEREDITARY ANGIOEDEMA
     Dosage: 30MG/3ML, PRN
     Route: 058
     Dates: start: 20181029
  2. ICATIBANT [Suspect]
     Active Substance: ICATIBANT ACETATE
     Dosage: 30MG/3ML, PRN
     Route: 058
     Dates: start: 20200510
  3. ICATIBANT [Suspect]
     Active Substance: ICATIBANT ACETATE
     Dosage: 30MG/3ML, PRN
     Route: 058
     Dates: start: 20200130
  4. ICATIBANT [Suspect]
     Active Substance: ICATIBANT ACETATE
     Dosage: 30 MG/ 3 ML, PRN
     Route: 058
     Dates: start: 20201029
  5. ICATIBANT [Suspect]
     Active Substance: ICATIBANT ACETATE
     Dosage: 30MG/3ML, MAXIMUM 3 SYRINGES IN 24 HOURS
     Route: 058
     Dates: start: 20201029
  6. ICATIBANT [Suspect]
     Active Substance: ICATIBANT ACETATE
     Dosage: 30MG/3ML, PRN
     Route: 058
     Dates: start: 20200130
  7. COVID?19 VACCINE NOS. [Suspect]
     Active Substance: COVID-19 VACCINE NOS
     Indication: COVID-19
     Route: 065
  8. ICATIBANT [Suspect]
     Active Substance: ICATIBANT ACETATE
     Indication: HEREDITARY ANGIOEDEMA
     Dosage: 30MG/3ML, PRN
     Route: 058
     Dates: start: 20181029
  9. ICATIBANT [Suspect]
     Active Substance: ICATIBANT ACETATE
     Dosage: 30MG/3ML, MAXIMUM 3 SYRINGES IN 24 HOURS
     Route: 058
     Dates: start: 20201029
  10. ICATIBANT [Suspect]
     Active Substance: ICATIBANT ACETATE
     Dosage: UNK, PRN
     Route: 058
     Dates: start: 20201029
  11. ICATIBANT [Suspect]
     Active Substance: ICATIBANT ACETATE
     Dosage: 30 MG/ 3 ML, PRN
     Route: 058
     Dates: start: 20201029
  12. ICATIBANT [Suspect]
     Active Substance: ICATIBANT ACETATE
     Dosage: 30MG/3ML, PRN
     Route: 058
     Dates: start: 20200510
  13. ICATIBANT [Suspect]
     Active Substance: ICATIBANT ACETATE
     Dosage: UNK, PRN
     Route: 058
     Dates: start: 20201029

REACTIONS (8)
  - Discouragement [Not Recovered/Not Resolved]
  - Myalgia [Not Recovered/Not Resolved]
  - Diarrhoea [Not Recovered/Not Resolved]
  - Headache [Not Recovered/Not Resolved]
  - Weight increased [Unknown]
  - Asthenia [Unknown]
  - Hereditary angioedema [Recovering/Resolving]
  - Feeling abnormal [Recovered/Resolved]

NARRATIVE: CASE EVENT DATE: 20201117
